FAERS Safety Report 18052015 (Version 4)
Quarter: 2020Q3

REPORT INFORMATION
  Report Type: Spontaneous
  Country: JP (occurrence: JP)
  Receive Date: 20200721
  Receipt Date: 20200922
  Transmission Date: 20201103
  Serious: Yes (Hospitalization, Other)
  Sender: FDA-Public Use
  Company Number: JP-PFIZER INC-2020238275

PATIENT
  Age: 66 Year
  Sex: Female
  Weight: 68.7 kg

DRUGS (16)
  1. RHEUMATREX [Suspect]
     Active Substance: METHOTREXATE SODIUM
     Indication: RHEUMATOID ARTHRITIS
     Dosage: 6 MG, WEEKLY
     Route: 048
     Dates: start: 20080404, end: 20080724
  2. METHOTREXATE TOWA [Suspect]
     Active Substance: METHOTREXATE
     Indication: RHEUMATOID ARTHRITIS
     Dosage: 12 MG, WEEKLY
     Route: 048
     Dates: start: 20130528, end: 20140403
  3. METHOTREXATE TOWA [Suspect]
     Active Substance: METHOTREXATE
     Dosage: 8 MG, WEEKLY
     Route: 048
     Dates: start: 20180518, end: 20180607
  4. XELJANZ [Suspect]
     Active Substance: TOFACITINIB CITRATE
     Dosage: 5 MG, ALTERNATE DAY
     Route: 048
     Dates: start: 20200313, end: 20200625
  5. METHOTREXATE TOWA [Suspect]
     Active Substance: METHOTREXATE
     Dosage: 8 MG, WEEKLY
     Route: 048
     Dates: start: 20200313
  6. XELJANZ [Suspect]
     Active Substance: TOFACITINIB CITRATE
     Indication: RHEUMATOID ARTHRITIS
     Dosage: 5 MG, 2X/DAY
     Route: 048
     Dates: start: 20171219, end: 20180309
  7. METHOTREXATE MYLAN [Suspect]
     Active Substance: METHOTREXATE SODIUM
     Dosage: 12 MG, WEEKLY
     Route: 048
     Dates: start: 20120214, end: 20130527
  8. METHOTREXATE TOWA [Suspect]
     Active Substance: METHOTREXATE
     Dosage: 14 MG, WEEKLY
     Route: 048
     Dates: start: 20140404, end: 20170323
  9. METHOTREXATE TOWA [Suspect]
     Active Substance: METHOTREXATE
     Dosage: 16 MG, WEEKLY
     Route: 048
     Dates: start: 20170324, end: 20180308
  10. RHEUMATREX [Suspect]
     Active Substance: METHOTREXATE SODIUM
     Dosage: 8 MG, WEEKLY
     Route: 048
     Dates: start: 20080725, end: 20110609
  11. METHOTREXATE MYLAN [Suspect]
     Active Substance: METHOTREXATE SODIUM
     Indication: RHEUMATOID ARTHRITIS
     Dosage: 8 MG, WEEKLY
     Route: 048
     Dates: start: 20110610, end: 20120126
  12. METHOTREXATE TOWA [Suspect]
     Active Substance: METHOTREXATE
     Dosage: 10 MG, WEEKLY
     Route: 048
     Dates: start: 20180608, end: 20180626
  13. XELJANZ [Suspect]
     Active Substance: TOFACITINIB CITRATE
     Dosage: 5 MG, ALTERNATE DAY
     Route: 048
     Dates: start: 20200709, end: 2020
  14. METHOTREXATE MYLAN [Suspect]
     Active Substance: METHOTREXATE SODIUM
     Dosage: 10 MG, WEEKLY
     Route: 048
     Dates: start: 20120127, end: 20120213
  15. METHOTREXATE TOWA [Suspect]
     Active Substance: METHOTREXATE
     Dosage: 12 MG, WEEKLY
     Route: 048
     Dates: start: 20180627, end: 20200312
  16. LIXIANA [Concomitant]
     Active Substance: EDOXABAN TOSYLATE
     Indication: DEEP VEIN THROMBOSIS
     Dosage: 30 MG, 1X/DAY
     Route: 048
     Dates: start: 20180605

REACTIONS (4)
  - Pneumonia cryptococcal [Recovering/Resolving]
  - Therapeutic product effect incomplete [Unknown]
  - Breast cancer [Recovered/Resolved]
  - Rheumatoid arthritis [Recovering/Resolving]

NARRATIVE: CASE EVENT DATE: 20180309
